FAERS Safety Report 18954675 (Version 3)
Quarter: 2022Q1

REPORT INFORMATION
  Report Type: Spontaneous
  Country: JP (occurrence: JP)
  Receive Date: 20210301
  Receipt Date: 20220110
  Transmission Date: 20220423
  Serious: Yes (Death)
  Sender: FDA-Public Use
  Company Number: JP-JNJFOC-A-CH2019-197557

PATIENT
  Age: 65 Year
  Sex: Female
  Weight: 38.7 kg

DRUGS (22)
  1. UPTRAVI [Suspect]
     Active Substance: SELEXIPAG
     Indication: Pulmonary arterial hypertension
     Route: 048
     Dates: start: 20190529, end: 20190604
  2. UPTRAVI [Suspect]
     Active Substance: SELEXIPAG
     Route: 048
     Dates: start: 20190605, end: 20190611
  3. UPTRAVI [Suspect]
     Active Substance: SELEXIPAG
     Route: 048
     Dates: start: 20190612, end: 20190618
  4. UPTRAVI [Suspect]
     Active Substance: SELEXIPAG
     Route: 048
     Dates: start: 20190619, end: 20190625
  5. UPTRAVI [Suspect]
     Active Substance: SELEXIPAG
     Route: 048
     Dates: start: 20190626, end: 20190901
  6. UPTRAVI [Suspect]
     Active Substance: SELEXIPAG
     Route: 048
     Dates: start: 20190902, end: 20191013
  7. OPSUMIT [Suspect]
     Active Substance: MACITENTAN
     Indication: Pulmonary arterial hypertension
     Route: 048
     Dates: end: 20191013
  8. OPSUMIT [Suspect]
     Active Substance: MACITENTAN
     Indication: Pulmonary arterial hypertension
  9. ADCIRCA [Concomitant]
     Active Substance: TADALAFIL
     Indication: Pulmonary arterial hypertension
     Route: 048
     Dates: end: 20191013
  10. LASIX [Concomitant]
     Active Substance: FUROSEMIDE
     Dates: end: 20191013
  11. SPIRONOLACTONE [Concomitant]
     Active Substance: SPIRONOLACTONE
     Dates: end: 20191013
  12. LANSOPRAZOLE [Concomitant]
     Active Substance: LANSOPRAZOLE
     Indication: Prophylaxis
     Dates: end: 20191013
  13. TORSEMIDE [Concomitant]
     Active Substance: TORSEMIDE
     Dates: end: 20191013
  14. PREDONINE [Concomitant]
     Active Substance: PREDNISOLONE
     Dates: end: 20191013
  15. IMURAN [Concomitant]
     Active Substance: AZATHIOPRINE
     Dates: end: 20191013
  16. ELDECALCITOL [Concomitant]
     Active Substance: ELDECALCITOL
     Indication: Prophylaxis
     Dates: end: 20191013
  17. LIPOVAS [SIMVASTATIN] [Concomitant]
     Dates: end: 20191013
  18. LUNESTA [Concomitant]
     Active Substance: ESZOPICLONE
     Dates: end: 20191013
  19. BELSOMRA [Concomitant]
     Active Substance: SUVOREXANT
     Dates: end: 20191013
  20. CLOTIAZEPAM [Concomitant]
     Active Substance: CLOTIAZEPAM
     Dates: end: 20191013
  21. POTASSIUM ASPARTATE [Concomitant]
     Active Substance: POTASSIUM ASPARTATE
     Dates: end: 20191013
  22. CARBOCYSTEINE [Concomitant]
     Active Substance: CARBOCYSTEINE
     Dates: end: 20191013

REACTIONS (3)
  - Pulmonary arterial hypertension [Fatal]
  - Malaise [Recovered/Resolved]
  - Malaise [Recovered/Resolved]

NARRATIVE: CASE EVENT DATE: 20190626
